FAERS Safety Report 8977548 (Version 1)
Quarter: 2012Q4

REPORT INFORMATION
  Report Type: 
  Country: GB (occurrence: US)
  Receive Date: 20121219
  Receipt Date: 20121219
  Transmission Date: 20130627
  Serious: Yes (Hospitalization)
  Sender: FDA-Public Use
  Company Number: US-009507513-1212USA004639

PATIENT
  Age: 58 Year
  Sex: Female
  Weight: 50.9 kg

DRUGS (13)
  1. TEMOZOLOMIDE [Suspect]
     Indication: GLIOBLASTOMA
     Dosage: 300 mg, qd
     Route: 048
     Dates: start: 20100504, end: 20100508
  2. BEVACIZUMAB [Suspect]
     Indication: GLIOBLASTOMA
     Dosage: 509 mg  1 in 2 wk
     Route: 042
     Dates: start: 20100504
  3. TOPOTECAN [Suspect]
     Indication: GLIOBLASTOMA
     Dosage: 2.25 mg
     Route: 065
     Dates: start: 20100505, end: 20100509
  4. ZOFRAN [Concomitant]
  5. PROTONIX [Concomitant]
     Dosage: 40 mg
  6. MIRALAX [Concomitant]
  7. ETOPOSIDE [Concomitant]
  8. MEDROL [Concomitant]
     Dosage: Dose pack
  9. PREDNISONE [Concomitant]
     Dosage: 10 mg, bid
  10. PEPCID [Concomitant]
     Dosage: UNK
  11. HYDROXYZINE [Concomitant]
     Dosage: Q8hr, prn
  12. IFOSFAMIDE [Concomitant]
  13. MITOXANTRONE HYDROCHLORIDE [Concomitant]

REACTIONS (6)
  - Pneumonia cytomegaloviral [Unknown]
  - Pancytopenia [Unknown]
  - Convulsion [Unknown]
  - Acute respiratory distress syndrome [Unknown]
  - Infection [Unknown]
  - Cerebrovascular accident [Unknown]
